FAERS Safety Report 6212042-4 (Version None)
Quarter: 2009Q2

REPORT INFORMATION
  Report Type: 
  Country: None (occurrence: None)
  Receive Date: 20090602
  Receipt Date: 20090527
  Transmission Date: 20091009
  Serious: Yes (Hospitalization)
  Sender: FDA-Public Use
  Company Number: US-BRISTOL-MYERS SQUIBB COMPANY-14640692

PATIENT
  Age: 48 Year
  Sex: Male

DRUGS (1)
  1. TEQUIN [Suspect]
     Indication: PROSTATITIS
     Dosage: TAB
     Dates: start: 20040401

REACTIONS (2)
  - BLOOD GLUCOSE INCREASED [None]
  - EYE DISORDER [None]
